FAERS Safety Report 24075834 (Version 1)
Quarter: 2024Q3

REPORT INFORMATION
  Report Type: Spontaneous
  Country: US (occurrence: US)
  Receive Date: 20240710
  Receipt Date: 20240710
  Transmission Date: 20241016
  Serious: Yes (Other)
  Sender: PURDUE
  Company Number: US-NAPPMUNDI-GBR-2024-0117863

PATIENT
  Age: 38 Year
  Sex: Female

DRUGS (3)
  1. MORPHINE SULFATE [Suspect]
     Active Substance: MORPHINE SULFATE
     Indication: Spinal anaesthesia
     Dosage: INJECTED AT THE L2-3 LEVEL
     Route: 065
  2. BUPIVACAINE [Suspect]
     Active Substance: BUPIVACAINE
     Indication: Spinal anaesthesia
     Dosage: INJECTED AT THE L2-3 LEVEL
     Route: 065
  3. FENTANYL [Suspect]
     Active Substance: FENTANYL\FENTANYL CITRATE
     Indication: Spinal anaesthesia
     Dosage: INJECTED AT THE L2-3 LEVEL
     Route: 065

REACTIONS (2)
  - Anterior spinal artery syndrome [Not Recovered/Not Resolved]
  - Maternal exposure during pregnancy [Unknown]
